FAERS Safety Report 9459235 (Version 3)
Quarter: 2013Q4

REPORT INFORMATION
  Report Type: Report from Study
  Country: JP (occurrence: JP)
  Receive Date: 20130814
  Receipt Date: 20131129
  Transmission Date: 20140711
  Serious: Yes (Hospitalization)
  Sender: FDA-Public Use
  Company Number: JP-PFIZER INC-2013227934

PATIENT
  Age: 51 Year
  Sex: Female
  Weight: 51 kg

DRUGS (12)
  1. XALKORI [Suspect]
     Indication: NON-SMALL CELL LUNG CANCER
     Dosage: 250 MG, 2X/DAY
     Route: 048
     Dates: start: 20130104, end: 20130105
  2. XALKORI [Suspect]
     Dosage: 250 MG, 1X/DAY
     Route: 048
     Dates: start: 20130110, end: 20130119
  3. ALOXI [Concomitant]
     Indication: PROPHYLAXIS
     Dosage: 0.75 MG, 1X/DAY
     Dates: start: 20130104, end: 20130104
  4. ALOXI [Concomitant]
     Dosage: 0.75 MG, 1X/DAY
     Dates: start: 20130110, end: 20130110
  5. DEXART [Concomitant]
     Indication: PROPHYLAXIS
     Dosage: 6.6 MG, 1X/DAY
     Dates: start: 20130104, end: 20130104
  6. DEXART [Concomitant]
     Dosage: 6.6 MG, 1X/DAY
     Dates: start: 20130110, end: 20130110
  7. PRIMPERAN [Concomitant]
     Indication: PROPHYLAXIS
     Dosage: 5 MG, 3X/DAY
     Route: 048
     Dates: start: 20130104, end: 20130107
  8. PRIMPERAN [Concomitant]
     Dosage: 5 MG, 3X/DAY
     Route: 048
     Dates: start: 20130110, end: 20130116
  9. FAMOTIDINE D [Concomitant]
     Indication: PROPHYLAXIS
     Dosage: 20 MG, 1X/DAY
     Route: 048
     Dates: start: 20130105, end: 20130106
  10. FAMOTIDINE D [Concomitant]
     Dosage: 20 MG, 1X/DAY
     Route: 048
     Dates: start: 20130110, end: 20130112
  11. DECADRON [Concomitant]
     Indication: PROPHYLAXIS
     Dosage: 3 MG, 1X/DAY
     Route: 048
     Dates: start: 20130105, end: 20130106
  12. DECADRON [Concomitant]
     Dosage: 3 MG, 1X/DAY
     Route: 048
     Dates: start: 20130111, end: 20130112

REACTIONS (3)
  - Blood creatinine increased [Recovered/Resolved]
  - Hepatotoxicity [Recovering/Resolving]
  - Hypoalbuminaemia [Recovered/Resolved]
